FAERS Safety Report 10394638 (Version 1)
Quarter: 2014Q3

REPORT INFORMATION
  Report Type: Spontaneous
  Country: US (occurrence: US)
  Receive Date: 20140820
  Receipt Date: 20140820
  Transmission Date: 20150326
  Serious: Yes (Death, Hospitalization)
  Sender: FDA-Public Use
  Company Number: US-B.I. PHARMACEUTICALS,INC./RIDGEFIELD-2014-BI-37645BP

PATIENT
  Age: 81 Year
  Sex: Male

DRUGS (10)
  1. MULTIVITAMIN [Concomitant]
     Active Substance: VITAMINS
     Dosage: 1 ANZ
     Route: 065
  2. AVAPRO [Concomitant]
     Active Substance: IRBESARTAN
     Dosage: 75 MG
     Route: 065
  3. HYDROCHLOROTHIAZIDE. [Concomitant]
     Active Substance: HYDROCHLOROTHIAZIDE
     Dosage: 25 MG
     Route: 065
  4. PRADAXA [Suspect]
     Active Substance: DABIGATRAN ETEXILATE MESYLATE
     Indication: ATRIAL FIBRILLATION
     Dosage: 300 MG
     Route: 048
     Dates: end: 20120621
  5. AMBIEN [Concomitant]
     Active Substance: ZOLPIDEM TARTRATE
     Dosage: 2.5 MG
     Route: 048
  6. GLUCOSAMINE/CHONDROITIN [Concomitant]
     Dosage: DOSE PER APPLICATION AND DAILY DOSE: 500/400MG CAP 1
     Route: 065
  7. LIPITOR [Concomitant]
     Active Substance: ATORVASTATIN CALCIUM
     Route: 065
  8. RANITIDINE [Concomitant]
     Active Substance: RANITIDINE\RANITIDINE HYDROCHLORIDE
     Dosage: 300 MG
     Route: 048
  9. MESALAMINE. [Concomitant]
     Active Substance: MESALAMINE
     Dosage: 2.4 G
     Route: 065
  10. ATENOLOL. [Concomitant]
     Active Substance: ATENOLOL
     Dosage: 50 MG
     Route: 065

REACTIONS (2)
  - Cerebral haemorrhage [Fatal]
  - Epistaxis [Unknown]

NARRATIVE: CASE EVENT DATE: 20120621
